FAERS Safety Report 20434604 (Version 1)
Quarter: 2022Q1

REPORT INFORMATION
  Report Type: Spontaneous
  Country: BR (occurrence: BR)
  Receive Date: 20220206
  Receipt Date: 20220206
  Transmission Date: 20220423
  Serious: Yes (Other)
  Sender: FDA-Public Use
  Company Number: BR-NOVARTISPH-NVSC2022BR024722

PATIENT
  Age: 82 Year
  Sex: Female

DRUGS (1)
  1. EXELON PATCH [Suspect]
     Active Substance: RIVASTIGMINE
     Indication: Product used for unknown indication
     Dosage: 4.6 MG, QD
     Route: 065
     Dates: start: 20220112, end: 20220114

REACTIONS (5)
  - Shock [Recovered/Resolved]
  - Muscle spasms [Recovered/Resolved]
  - Confusional state [Recovered/Resolved]
  - Daydreaming [Recovered/Resolved]
  - Confusional state [Recovering/Resolving]

NARRATIVE: CASE EVENT DATE: 20220112
